FAERS Safety Report 4712977-5 (Version None)
Quarter: 2005Q3

REPORT INFORMATION
  Report Type: 
  Country: None (occurrence: None)
  Receive Date: 20050711
  Receipt Date: 20050706
  Transmission Date: 20060218
  Serious: Yes (Hospitalization, Other)
  Sender: FDA-Public Use
  Company Number: 200509300

PATIENT
  Age: 73 Year
  Sex: Male

DRUGS (5)
  1. STREPTASE [Suspect]
     Indication: MYOCARDIAL INFARCTION
     Dosage: 1.5 MIU DAILY IV
     Route: 042
     Dates: start: 20050205, end: 20050205
  2. ASPIRIN [Suspect]
     Indication: MYOCARDIAL INFARCTION
     Dosage: 150 MG DAILY PO
     Route: 048
     Dates: start: 20050205, end: 20050209
  3. ENOXAPARIN OR PALCEBO VS. HEPARIN OR PLACEBO [Suspect]
     Dosage: IV
     Route: 042
     Dates: start: 20050205, end: 20050209
  4. ATENOLOL [Concomitant]
  5. SIMVASTATIN [Concomitant]

REACTIONS (4)
  - HAEMATOCRIT DECREASED [None]
  - HAEMOGLOBIN DECREASED [None]
  - MALLORY-WEISS SYNDROME [None]
  - UPPER GASTROINTESTINAL HAEMORRHAGE [None]
